FAERS Safety Report 12186807 (Version 1)
Quarter: 2016Q1

REPORT INFORMATION
  Report Type: Spontaneous
  Country: US (occurrence: None)
  Receive Date: 20160316
  Receipt Date: 20160316
  Transmission Date: 20160526
  Serious: Yes (Disabling)
  Sender: FDA-Public Use
  Company Number: None

PATIENT
  Age: 73 Year
  Sex: Female
  Weight: 54.43 kg

DRUGS (9)
  1. PROLIA [Suspect]
     Active Substance: DENOSUMAB
     Indication: OSTEOPOROSIS
     Dosage: GIVEN  INTO/ UNDER THE SKIN
     Route: 058
     Dates: start: 20150409, end: 20150409
  2. FUROSEMIDE. [Concomitant]
     Active Substance: FUROSEMIDE
  3. QVAR [Concomitant]
     Active Substance: BECLOMETHASONE DIPROPIONATE
  4. SPIRIVA [Concomitant]
     Active Substance: TIOTROPIUM BROMIDE MONOHYDRATE
  5. CALCIUM [Concomitant]
     Active Substance: CALCIUM
  6. LEVOFLOXACIN 500 MG ZYDUS [Suspect]
     Active Substance: LEVOFLOXACIN
     Indication: UPPER RESPIRATORY TRACT INFECTION
     Route: 048
     Dates: start: 20160218, end: 20160228
  7. SPIRONOLATONE [Concomitant]
     Active Substance: SPIRONOLACTONE
  8. ACIDOPHILIOUS [Concomitant]
  9. OMEPRAMAZOLE [Concomitant]

REACTIONS (11)
  - Muscle spasms [None]
  - Vertigo [None]
  - Dysuria [None]
  - Pruritus [None]
  - Nausea [None]
  - Pharyngitis [None]
  - Arthralgia [None]
  - Gastrointestinal disorder [None]
  - Headache [None]
  - Back pain [None]
  - Skin disorder [None]

NARRATIVE: CASE EVENT DATE: 20150409
